FAERS Safety Report 9162967 (Version 1)
Quarter: 2013Q1

REPORT INFORMATION
  Report Type: Spontaneous
  Country: US (occurrence: US)
  Receive Date: 20130314
  Receipt Date: 20130314
  Transmission Date: 20140127
  Serious: No
  Sender: FDA-Public Use
  Company Number: US-BAYER-2013-027575

PATIENT
  Age: 42 Year
  Sex: Male

DRUGS (3)
  1. LEVITRA [Suspect]
     Indication: ERECTILE DYSFUNCTION
     Dosage: UNK
     Route: 048
     Dates: start: 2000, end: 2000
  2. PREVACID [Concomitant]
  3. ALLERGY MEDICATION [Concomitant]

REACTIONS (1)
  - Drug ineffective [Recovered/Resolved]
